FAERS Safety Report 10420087 (Version 1)
Quarter: 2014Q3

REPORT INFORMATION
  Report Type: Spontaneous
  Country: JP (occurrence: None)
  Receive Date: 20140828
  Receipt Date: 20140828
  Transmission Date: 20150326
  Serious: Yes (Other)
  Sender: FDA-Public Use
  Company Number: BD-2014-0054

PATIENT
  Age: 13 Year
  Sex: Female
  Weight: 46 kg

DRUGS (12)
  1. PROPOFOL. [Concomitant]
     Active Substance: PROPOFOL
  2. FLURBIPROFEN. [Concomitant]
     Active Substance: FLURBIPROFEN
  3. MONTELUKAST [Concomitant]
     Active Substance: MONTELUKAST SODIUM
  4. DICLOFENAC [Concomitant]
     Active Substance: DICLOFENAC
  5. CARBOCISTEINE [Concomitant]
     Active Substance: CARBOCYSTEINE
  6. FENTANYL. [Concomitant]
     Active Substance: FENTANYL
  7. SEVOFLURANE. [Concomitant]
     Active Substance: SEVOFLURANE
  8. MORPHINE SULFATE. [Suspect]
     Active Substance: MORPHINE SULFATE
     Indication: PROCEDURAL PAIN
     Route: 042
  9. REMIFENTANIL [Concomitant]
     Active Substance: REMIFENTANIL
  10. ROCURONIUM (ROCURONIUM BROMIDE) [Concomitant]
  11. METOCLOPRAMIDE. [Concomitant]
     Active Substance: METOCLOPRAMIDE
  12. MEQUITAZINE (MEQUITAZINE) [Concomitant]

REACTIONS (2)
  - Dyspnoea [None]
  - Asthma [None]
